FAERS Safety Report 4380086-3 (Version None)
Quarter: 2004Q2

REPORT INFORMATION
  Report Type: 
  Country: None (occurrence: None)
  Receive Date: 20040614
  Receipt Date: 20040324
  Transmission Date: 20050107
  Serious: No
  Sender: FDA-Public Use
  Company Number: M04-341-036

PATIENT
  Age: 68 Year
  Sex: Male

DRUGS (15)
  1. VELCADE [Suspect]
     Indication: MULTIPLE MYELOMA
     Dosage: 2.4 MG: INTRAVENOUS BOLUS
     Route: 040
     Dates: start: 20040120, end: 20040123
  2. ACETAMINOPHEN [Concomitant]
  3. ACYCLOVIR [Concomitant]
  4. AMBIEN [Concomitant]
  5. AVAPRO [Concomitant]
  6. BACTRIM [Concomitant]
  7. COLACE (DOCUSATE SODIUM) [Concomitant]
  8. EPOPEN (ERYTHROPOIETIN HUMAN) [Concomitant]
  9. LACTULOSE [Concomitant]
  10. MEGESTROL [Concomitant]
  11. NEURONTIN [Concomitant]
  12. PANTOPRAZOLE [Concomitant]
  13. PROCRIT (ERYTHROPOIETIN) [Concomitant]
  14. SENOKOT [Concomitant]
  15. TAMSULOSIN [Concomitant]

REACTIONS (4)
  - DIARRHOEA [None]
  - NAUSEA [None]
  - PYREXIA [None]
  - VISION BLURRED [None]
